FAERS Safety Report 10787824 (Version 1)
Quarter: 2015Q1

REPORT INFORMATION
  Report Type: Spontaneous
  Country: TR (occurrence: None)
  Receive Date: 20150210
  Receipt Date: 20150210
  Transmission Date: 20150721
  Serious: Yes (Hospitalization)
  Sender: FDA-Public Use
  Company Number: IPC201501-000060

PATIENT
  Age: 15 Year
  Sex: Male

DRUGS (3)
  1. METOPROLOL TARTRATE. [Suspect]
     Active Substance: METOPROLOL TARTRATE
  2. SALICYLATE [Suspect]
     Active Substance: SALICYLIC ACID
  3. SERTRALINE [Suspect]
     Active Substance: SERTRALINE HYDROCHLORIDE

REACTIONS (4)
  - Poisoning [None]
  - Hypocalcaemia [None]
  - Hypotension [None]
  - Hypokalaemia [None]
